FAERS Safety Report 17218401 (Version 1)
Quarter: 2019Q4

REPORT INFORMATION
  Report Type: Spontaneous
  Country: FR (occurrence: FR)
  Receive Date: 20191231
  Receipt Date: 20191231
  Transmission Date: 20200122
  Serious: Yes (Other)
  Sender: FDA-Public Use
  Company Number: FR-BAXTER-2019BAX026377

PATIENT
  Age: 55 Year
  Sex: Male

DRUGS (4)
  1. MILRINONE PANPHARMA 1 MG/ML, SOLUTION INJECTABLE/POUR PERFUSION [Suspect]
     Active Substance: MILRINONE LACTATE
     Dosage: UP TO 2 MCG/KG/MIN
     Route: 041
  2. MILRINONE PANPHARMA 1 MG/ML, SOLUTION INJECTABLE/POUR PERFUSION [Suspect]
     Active Substance: MILRINONE LACTATE
     Indication: CEREBRAL VASOCONSTRICTION
     Dosage: MAX.4 MG
     Route: 013
  3. NIMODIPINE. [Suspect]
     Active Substance: NIMODIPINE
     Indication: CEREBRAL VASOCONSTRICTION
     Dosage: MAX.3 MG
     Route: 013
  4. MAGNESIUM SULFATE. [Concomitant]
     Active Substance: MAGNESIUM SULFATE
     Indication: CEREBRAL VASOCONSTRICTION
     Route: 065

REACTIONS (2)
  - Cardiomyopathy [Recovered/Resolved]
  - Drug ineffective [Unknown]
